FAERS Safety Report 19585747 (Version 1)
Quarter: 2021Q3

REPORT INFORMATION
  Report Type: Other
  Country: SG (occurrence: SG)
  Receive Date: 20210721
  Receipt Date: 20210721
  Transmission Date: 20211014
  Serious: Yes (Hospitalization)
  Sender: FDA-Public Use
  Company Number: SG-NUVO PHARMACEUTICALS INC-2114075

PATIENT
  Age: 59 Year
  Sex: Female

DRUGS (1)
  1. SODIUM POLYSTYRENE SULFONATE. [Suspect]
     Active Substance: SODIUM POLYSTYRENE SULFONATE
     Indication: PRODUCT USED FOR UNKNOWN INDICATION
     Route: 048

REACTIONS (1)
  - Inflammatory pseudotumour [Not Recovered/Not Resolved]
